FAERS Safety Report 5796813-4 (Version None)
Quarter: 2008Q3

REPORT INFORMATION
  Report Type: 
  Country: None (occurrence: None)
  Receive Date: 20080701
  Receipt Date: 20080627
  Transmission Date: 20090109
  Serious: Yes (Death, Hospitalization)
  Sender: FDA-Public Use
  Company Number: PHHO2008TW06578

PATIENT
  Sex: Female
  Weight: 59.5 kg

DRUGS (10)
  1. TASIGNA [Suspect]
     Indication: CHRONIC MYELOID LEUKAEMIA
     Dosage: 800MG DAILY
     Route: 048
     Dates: start: 20080425, end: 20080506
  2. ISOSORBIDE MONONITRATE [Concomitant]
  3. ALDACTONE [Concomitant]
  4. TRITACE [Concomitant]
  5. TRANDATE [Concomitant]
  6. ADALAT [Concomitant]
  7. CARVEDILOL [Concomitant]
  8. OLMESARTAN MEDOXOMIL [Concomitant]
  9. COZAAR [Concomitant]
  10. DEXABENE [Concomitant]

REACTIONS (9)
  - BRAIN HERNIATION [None]
  - CEREBROVASCULAR ACCIDENT [None]
  - GENERAL PHYSICAL HEALTH DETERIORATION [None]
  - HAEMORRHAGE INTRACRANIAL [None]
  - HEADACHE [None]
  - HYPERTENSION [None]
  - LOSS OF CONSCIOUSNESS [None]
  - THROMBOCYTOPENIA [None]
  - VISUAL MIDLINE SHIFT SYNDROME [None]
